FAERS Safety Report 4375149-2 (Version None)
Quarter: 2004Q2

REPORT INFORMATION
  Report Type: 
  Country: None (occurrence: None)
  Receive Date: 20040603
  Receipt Date: 20040527
  Transmission Date: 20050107
  Serious: Yes (Death, Hospitalization)
  Sender: FDA-Public Use
  Company Number: STA-AE-04-MTX-023

PATIENT
  Age: 66 Year
  Sex: Male

DRUGS (3)
  1. RHEUMATREX [Suspect]
     Indication: RHEUMATOID ARTHRITIS
     Dosage: 2 MG 1 X PER 1 WK, ORAL
     Route: 048
     Dates: end: 20030201
  2. RHEUMATREX [Suspect]
     Indication: RHEUMATOID ARTHRITIS
     Dosage: 6 MG 1 X PER 1 WK, ORAL
     Route: 048
     Dates: start: 20030225, end: 20031014
  3. RHEUMATREX [Suspect]
     Indication: RHEUMATOID ARTHRITIS
     Dosage: ORAL
     Route: 048
     Dates: start: 20031015, end: 20040111

REACTIONS (5)
  - PANCYTOPENIA [None]
  - PLEURAL EFFUSION [None]
  - PNEUMOCOCCAL INFECTION [None]
  - PNEUMONIA ASPIRATION [None]
  - PNEUMONIA PNEUMOCOCCAL [None]
